FAERS Safety Report 9965798 (Version 1)
Quarter: 2014Q1

REPORT INFORMATION
  Report Type: Report from Study
  Country: US (occurrence: US)
  Receive Date: 20140305
  Receipt Date: 20140305
  Transmission Date: 20141002
  Serious: Yes (Other)
  Sender: FDA-Public Use
  Company Number: US-ABBVIE-13P-163-1124753-00

PATIENT
  Sex: Female

DRUGS (9)
  1. HUMIRA [Suspect]
     Indication: RHEUMATOID ARTHRITIS
     Dates: start: 2003, end: 201210
  2. DIOVAN [Concomitant]
     Indication: HYPERTENSION
  3. FOLIC ACID [Concomitant]
     Indication: RHEUMATOID ARTHRITIS
  4. TRIAMTERENE [Concomitant]
     Indication: HYPERTENSION
  5. LEVOTHYROX [Concomitant]
     Indication: HYPOTHYROIDISM
  6. DEXILANT [Concomitant]
     Indication: GASTROOESOPHAGEAL REFLUX DISEASE
  7. CALCIUM + VITAMIN D [Concomitant]
     Indication: PRODUCT USED FOR UNKNOWN INDICATION
  8. MULTIVITAMINS [Concomitant]
     Indication: PRODUCT USED FOR UNKNOWN INDICATION
     Dosage: DAILY
  9. EYEPROMISE [Concomitant]
     Indication: MACULAR DEGENERATION

REACTIONS (6)
  - Bunion operation [Recovering/Resolving]
  - Joint arthroplasty [Unknown]
  - Chronic obstructive pulmonary disease [Recovering/Resolving]
  - Musculoskeletal pain [Unknown]
  - Inflammation [Recovering/Resolving]
  - Local swelling [Recovering/Resolving]
